FAERS Safety Report 6916558-4 (Version None)
Quarter: 2010Q3

REPORT INFORMATION
  Report Type: 
  Country: None (occurrence: None)
  Receive Date: 20100810
  Receipt Date: 20100730
  Transmission Date: 20110219
  Serious: Yes (Life-Threatening, Hospitalization)
  Sender: FDA-Public Use
  Company Number: JP-AMGEN-QUU414121

PATIENT
  Sex: Female
  Weight: 75 kg

DRUGS (26)
  1. ENBREL [Suspect]
     Indication: RHEUMATOID ARTHRITIS
     Route: 058
     Dates: start: 20070209, end: 20070327
  2. ENBREL [Suspect]
     Route: 058
     Dates: start: 20070425, end: 20070905
  3. ENBREL [Suspect]
     Route: 058
     Dates: start: 20070919, end: 20071024
  4. ENBREL [Suspect]
     Route: 058
     Dates: start: 20071107, end: 20071205
  5. ENBREL [Suspect]
     Route: 058
     Dates: start: 20071227, end: 20080806
  6. ENBREL [Suspect]
     Route: 058
     Dates: start: 20080813, end: 20081001
  7. ENBREL [Suspect]
     Route: 058
     Dates: start: 20081008, end: 20100414
  8. TAKEPRON [Concomitant]
     Indication: REFLUX OESOPHAGITIS
     Route: 048
  9. MUCOSIL-10 [Concomitant]
     Route: 048
  10. ISCOTIN [Concomitant]
     Indication: ANTIBIOTIC PROPHYLAXIS
     Route: 048
     Dates: start: 20090111
  11. PYDOXAL [Concomitant]
     Route: 048
     Dates: start: 20090111
  12. BACTRAMIN [Concomitant]
     Indication: INFECTION PROPHYLAXIS
     Route: 048
     Dates: start: 20090130
  13. OLMESARTAN MEDOXOMIL [Concomitant]
     Indication: HYPERTENSION
     Route: 048
  14. NORVASC [Concomitant]
     Indication: HYPERTENSION
     Route: 048
  15. D ALFA [Concomitant]
     Indication: OSTEOPOROSIS
     Route: 048
  16. GLAKAY [Concomitant]
     Indication: OSTEOPOROSIS
     Route: 048
  17. MUCOSTA [Concomitant]
     Indication: GASTRITIS
     Route: 048
  18. MUCOSTA [Concomitant]
     Route: 048
  19. MUCODYNE [Concomitant]
     Indication: BRONCHIOLITIS
     Route: 048
  20. MYSLEE [Concomitant]
     Indication: INSOMNIA
     Route: 048
  21. FOSAMAX [Concomitant]
     Indication: OSTEOPOROSIS
     Route: 048
  22. LOXONIN [Concomitant]
     Indication: RHEUMATOID ARTHRITIS
     Route: 048
  23. PREDONINE [Concomitant]
     Indication: RHEUMATOID ARTHRITIS
     Route: 048
     Dates: start: 20060301
  24. CLARITHROMYCIN [Concomitant]
     Route: 048
  25. CELECOXIB [Concomitant]
     Route: 048
  26. ALDACTONE [Concomitant]
     Indication: HYPERTENSION
     Route: 048

REACTIONS (1)
  - BREAST CANCER FEMALE [None]
